FAERS Safety Report 15938763 (Version 1)
Quarter: 2019Q1

REPORT INFORMATION
  Report Type: Report from Study
  Country: PL (occurrence: PL)
  Receive Date: 20190208
  Receipt Date: 20190208
  Transmission Date: 20190417
  Serious: Yes (Death)
  Sender: FDA-Public Use
  Company Number: PL-JNJFOC-20190201161

PATIENT

DRUGS (1)
  1. IBRUTINIB [Suspect]
     Active Substance: IBRUTINIB
     Indication: CHRONIC LYMPHOCYTIC LEUKAEMIA
     Route: 065

REACTIONS (6)
  - Neoplasm malignant [Fatal]
  - Malignant peritoneal neoplasm [Fatal]
  - Breast cancer [Fatal]
  - Skin cancer [Fatal]
  - Lung neoplasm malignant [Fatal]
  - Bladder cancer [Fatal]
